FAERS Safety Report 10905390 (Version 1)
Quarter: 2015Q1

REPORT INFORMATION
  Report Type: Spontaneous
  Country: US (occurrence: US)
  Receive Date: 20150311
  Receipt Date: 20150311
  Transmission Date: 20150721
  Serious: Yes (Hospitalization, Other)
  Sender: FDA-Public Use
  Company Number: US-SHIRE-US201501843

PATIENT
  Age: 65 Year
  Sex: Female
  Weight: 67.57 kg

DRUGS (10)
  1. ASPARTAME W/CHOLESTYRAMINE [Concomitant]
     Indication: PRODUCT USED FOR UNKNOWN INDICATION
     Dosage: 4 G (IN WATER), 1X/DAY:QD
     Route: 065
  2. METOPROLOL [Concomitant]
     Active Substance: METOPROLOL
     Indication: CARDIAC DISORDER
     Dosage: 50 MG, 1X/DAY:QD
     Route: 065
  3. FOLIC ACID. [Concomitant]
     Active Substance: FOLIC ACID
     Indication: PRODUCT USED FOR UNKNOWN INDICATION
     Dosage: 1 MG, 1X/DAY:QD
     Route: 065
  4. LIALDA [Suspect]
     Active Substance: MESALAMINE
     Indication: CROHN^S DISEASE
     Dosage: 2.4 G (2 TABLETS), 1X/DAY:QD
     Route: 048
     Dates: start: 2005
  5. ASPIRIN                            /00002701/ [Concomitant]
     Active Substance: ASPIRIN
     Indication: CARDIAC DISORDER
     Dosage: 81 MG, 1X/DAY:QD
     Route: 065
  6. MAGNESIUM OXIDE. [Concomitant]
     Active Substance: MAGNESIUM OXIDE
     Dosage: 800 MG, 2X/DAY:BID
     Route: 065
     Dates: start: 20150219
  7. CALCIUM [Concomitant]
     Active Substance: CALCIUM
     Indication: BONE DISORDER
     Dosage: 600 MG, 2X/DAY:BID
     Route: 065
  8. OMEPRAZOLE. [Concomitant]
     Active Substance: OMEPRAZOLE
     Indication: PRODUCT USED FOR UNKNOWN INDICATION
     Dosage: 40 MG, 1X/DAY:QD
     Route: 065
  9. MAGNESIUM OXIDE. [Concomitant]
     Active Substance: MAGNESIUM OXIDE
     Indication: CROHN^S DISEASE
     Dosage: 2000 MG, 2X/DAY:BID
     Route: 065
     Dates: end: 20150218
  10. ALENDRONATE [Concomitant]
     Active Substance: ALENDRONATE SODIUM
     Indication: BONE DISORDER
     Dosage: 70 MG, 1X/WEEK (EVERY MONDAY)
     Route: 065

REACTIONS (11)
  - Hypogeusia [Not Recovered/Not Resolved]
  - General symptom [Unknown]
  - Loss of consciousness [Recovered/Resolved]
  - Abnormal loss of weight [Not Recovered/Not Resolved]
  - Arthralgia [Recovered/Resolved]
  - Hyposmia [Not Recovered/Not Resolved]
  - Fall [None]
  - Product use issue [Not Recovered/Not Resolved]
  - Chondropathy [Recovered/Resolved]
  - Clostridium difficile infection [Recovering/Resolving]
  - Memory impairment [Not Recovered/Not Resolved]

NARRATIVE: CASE EVENT DATE: 2005
